FAERS Safety Report 7415776-9 (Version None)
Quarter: 2011Q2

REPORT INFORMATION
  Report Type: 
  Country: None (occurrence: None)
  Receive Date: 20110414
  Receipt Date: 20110331
  Transmission Date: 20111010
  Serious: Yes (Death)
  Sender: FDA-Public Use
  Company Number: IT-CELGENEUS-083-21880-11031564

PATIENT
  Weight: 57 kg

DRUGS (4)
  1. URBASON [Concomitant]
     Indication: PROMOTION OF PERIPHERAL CIRCULATION
     Route: 065
     Dates: start: 20100730, end: 20100908
  2. CYTARABINE [Suspect]
     Dosage: 40 MILLIGRAM
     Route: 058
     Dates: start: 20100804, end: 20100818
  3. MEVAN [Concomitant]
     Indication: INFECTION
     Dosage: 1500 MILLIGRAM
     Route: 065
     Dates: start: 20100831, end: 20100908
  4. REVLIMID [Suspect]
     Dosage: 10 MILLIGRAM
     Route: 048
     Dates: start: 20100804, end: 20100824

REACTIONS (2)
  - ACUTE MYELOID LEUKAEMIA [None]
  - NO THERAPEUTIC RESPONSE [None]
